FAERS Safety Report 9213907 (Version 1)
Quarter: 2013Q2

REPORT INFORMATION
  Report Type: Spontaneous
  Country: US (occurrence: None)
  Receive Date: 20130404
  Receipt Date: 20130404
  Transmission Date: 20140414
  Serious: Yes (Other)
  Sender: FDA-Public Use
  Company Number: None

PATIENT
  Age: 32 Year
  Sex: Female
  Weight: 49.9 kg

DRUGS (1)
  1. RENOVA [Suspect]
     Indication: SKIN DISORDER
     Dosage: LESS THAN A PEA SIZED AMOUNT  2/20 AND 2/22
     Route: 061
     Dates: start: 20130220, end: 20130222

REACTIONS (7)
  - Application site pruritus [None]
  - Application site erythema [None]
  - Application site reaction [None]
  - Skin exfoliation [None]
  - Eyelid oedema [None]
  - Erythema [None]
  - Drug ineffective [None]
